FAERS Safety Report 5331017-0 (Version None)
Quarter: 2007Q2

REPORT INFORMATION
  Report Type: 
  Country: None (occurrence: None)
  Receive Date: 20070517
  Receipt Date: 20070503
  Transmission Date: 20071010
  Serious: Yes (Life-Threatening, Hospitalization)
  Sender: FDA-Public Use
  Company Number: S07-SWI-02040-01

PATIENT
  Age: 79 Year
  Sex: Male

DRUGS (10)
  1. CITALOPRAM HYDROBROMIDE [Suspect]
     Indication: DEPRESSION
     Dosage: 20 MG QD PO
     Route: 048
     Dates: start: 20061101
  2. CITALOPRAM HYDROBROMIDE [Suspect]
     Indication: DEPRESSION
     Dosage: 10 MG QD PO
     Route: 048
     Dates: start: 20060901, end: 20061001
  3. GALANTAMINE HYDROBROMIDE [Suspect]
     Indication: DEMENTIA ALZHEIMER'S TYPE
     Dosage: 16 MG QD PO
     Route: 048
     Dates: start: 20050101
  4. SEROQUEL [Suspect]
     Indication: AGITATION
     Dosage: 62.5 MG QD PO
     Route: 048
     Dates: start: 20061113, end: 20061114
  5. SEROQUEL [Suspect]
     Indication: RESTLESSNESS
     Dosage: 62.5 MG QD PO
     Route: 048
     Dates: start: 20061113, end: 20061114
  6. SEROQUEL [Suspect]
     Indication: AGITATION
     Dosage: 25 MG QD PO
     Route: 048
     Dates: start: 20061101, end: 20061111
  7. SEROQUEL [Suspect]
     Indication: RESTLESSNESS
     Dosage: 25 MG QD PO
     Route: 048
     Dates: start: 20061101, end: 20061111
  8. SEROQUEL [Suspect]
     Indication: AGITATION
     Dosage: 25 MG BID PO
     Route: 048
     Dates: start: 20061112, end: 20061112
  9. SEROQUEL [Suspect]
     Indication: RESTLESSNESS
     Dosage: 25 MG BID PO
     Route: 048
     Dates: start: 20061112, end: 20061112
  10. BIOFLORIN (LACTOBACILLUS ACIDOPHILUS) [Concomitant]

REACTIONS (12)
  - AGITATION [None]
  - ATRIOVENTRICULAR BLOCK [None]
  - ATRIOVENTRICULAR BLOCK FIRST DEGREE [None]
  - BLOOD CREATININE INCREASED [None]
  - BRADYCARDIA [None]
  - BUNDLE BRANCH BLOCK LEFT [None]
  - GASTROENTERITIS [None]
  - HYPOTENSION [None]
  - MAJOR DEPRESSION [None]
  - RESTLESSNESS [None]
  - SUICIDAL IDEATION [None]
  - SYNCOPE [None]
